FAERS Safety Report 6206050-7 (Version None)
Quarter: 2009Q2

REPORT INFORMATION
  Report Type: 
  Country: None (occurrence: None)
  Receive Date: 20090528
  Receipt Date: 20090520
  Transmission Date: 20091009
  Serious: Yes (Hospitalization)
  Sender: FDA-Public Use
  Company Number: JP-JNJFOC-20090503656

PATIENT
  Sex: Female
  Weight: 60 kg

DRUGS (15)
  1. BLINDED; GOLIMUMA [Suspect]
     Route: 058
  2. BLINDED; GOLIMUMA [Suspect]
     Route: 058
  3. BLINDED; GOLIMUMA [Suspect]
     Route: 058
  4. BLINDED; GOLIMUMA [Suspect]
     Route: 058
  5. BLINDED; GOLIMUMA [Suspect]
     Indication: RHEUMATOID ARTHRITIS
     Route: 058
  6. PLACEBO [Suspect]
     Route: 058
  7. PLACEBO [Suspect]
     Route: 058
  8. PLACEBO [Suspect]
     Route: 058
  9. PLACEBO [Suspect]
     Route: 058
  10. PLACEBO [Suspect]
     Indication: RHEUMATOID ARTHRITIS
     Route: 058
  11. AMLODIPINE [Concomitant]
     Indication: HYPERTENSION
     Route: 048
  12. ALOSENN [Concomitant]
     Indication: CONSTIPATION
     Route: 048
  13. YAKUBAN [Concomitant]
     Indication: RHEUMATOID ARTHRITIS
     Route: 062
  14. HYALEIN [Concomitant]
     Indication: SJOGREN'S SYNDROME
     Route: 031
  15. ALEGYSAL [Concomitant]
     Indication: SJOGREN'S SYNDROME
     Route: 031

REACTIONS (1)
  - PNEUMONIA [None]
